FAERS Safety Report 20709409 (Version 3)
Quarter: 2023Q2

REPORT INFORMATION
  Report Type: Spontaneous
  Country: JP (occurrence: None)
  Receive Date: 20220414
  Receipt Date: 20230609
  Transmission Date: 20230722
  Serious: Yes (Death, Hospitalization)
  Sender: FDA-Public Use
  Company Number: 2022A144043

PATIENT
  Age: 78 Year
  Sex: Female
  Weight: 48 kg

DRUGS (17)
  1. LYNPARZA [Suspect]
     Active Substance: OLAPARIB
     Indication: Ovarian cancer recurrent
     Route: 048
     Dates: start: 20180821, end: 20220201
  2. PACLITAXEL [Suspect]
     Active Substance: PACLITAXEL
     Indication: Ovarian cancer recurrent
     Dosage: DOSE UNKNOWN
     Route: 065
     Dates: start: 20040216, end: 20180731
  3. CARBOPLATIN [Suspect]
     Active Substance: CARBOPLATIN
     Indication: Ovarian cancer recurrent
     Dosage: DOSE UNKNOWN
     Dates: start: 20040216, end: 20180731
  4. METHYLPREDNISOLONE [Suspect]
     Active Substance: METHYLPREDNISOLONE
     Indication: Pulmonary toxicity
     Dosage: 125.0MG UNKNOWN
     Dates: start: 20220208, end: 20220210
  5. METHYLPREDNISOLONE [Suspect]
     Active Substance: METHYLPREDNISOLONE
     Indication: Pulmonary toxicity
     Dosage: 80.0MG UNKNOWN
     Dates: start: 20220211
  6. PREDONINE [Suspect]
     Active Substance: PREDNISOLONE
     Indication: Pulmonary toxicity
     Dosage: 30.0MG UNKNOWN
     Dates: start: 20220215, end: 20220221
  7. PREDONINE [Suspect]
     Active Substance: PREDNISOLONE
     Indication: Pulmonary toxicity
     Dosage: 20.0MG UNKNOWN
     Dates: start: 20220222, end: 2022
  8. PREDONINE [Suspect]
     Active Substance: PREDNISOLONE
     Indication: Pulmonary toxicity
     Dosage: 80.0MG UNKNOWN
     Dates: start: 20220302, end: 20220324
  9. PREDONINE [Suspect]
     Active Substance: PREDNISOLONE
     Indication: Pulmonary toxicity
     Dosage: 40.0MG UNKNOWN
     Dates: start: 20220325
  10. AMLODIPINE [Concomitant]
     Active Substance: AMLODIPINE BESYLATE
     Indication: Hypertension
     Dosage: PRESCRIBED FROM ANOTHER HOSPITAL
     Route: 048
  11. TRICHLORMETHIAZIDE [Concomitant]
     Active Substance: TRICHLORMETHIAZIDE
     Indication: Hypertension
     Dosage: PRESCRIBED FROM ANOTHER HOSPITAL
     Route: 048
  12. PRAVASTATIN SODIUM [Concomitant]
     Active Substance: PRAVASTATIN SODIUM
     Indication: Hyperlipidaemia
     Dosage: PRESCRIBED FROM ANOTHER HOSPITAL
     Route: 048
  13. LANSOPRAZOLE [Concomitant]
     Active Substance: LANSOPRAZOLE
     Indication: Gastric ulcer
     Dosage: PRESCRIBED FROM ANOTHER HOSPITAL
     Route: 048
  14. MIYA-BM [Concomitant]
     Active Substance: CLOSTRIDIUM BUTYRICUM SPORES STRAIN M-55
     Indication: Diarrhoea
     Dosage: PRESCRIBED FROM ANOTHER HOSPITAL
     Route: 048
  15. ITOPRIDE HYDROCHLORIDE [Concomitant]
     Active Substance: ITOPRIDE HYDROCHLORIDE
     Indication: Chronic gastritis
     Dosage: PRESCRIBED FROM ANOTHER HOSPITAL
     Route: 048
  16. ALBUMIN TANNATE [Concomitant]
     Active Substance: ALBUMIN TANNATE
     Indication: Diarrhoea
     Dosage: PRESCRIBED FROM ANOTHER HOSPITAL
     Route: 048
  17. LOXOPROFEN SODIUM [Concomitant]
     Active Substance: LOXOPROFEN SODIUM
     Indication: Pain
     Dosage: AS REQUIRED, PRESCRIBED FROM ANOTHER HOSPITAL
     Route: 048

REACTIONS (5)
  - Myelodysplastic syndrome [Fatal]
  - Pulmonary toxicity [Not Recovered/Not Resolved]
  - Dementia Alzheimer^s type [Unknown]
  - Bursitis [Unknown]
  - Diabetes mellitus [Unknown]

NARRATIVE: CASE EVENT DATE: 20220201
